FAERS Safety Report 8208116-9 (Version None)
Quarter: 2012Q1

REPORT INFORMATION
  Report Type: 
  Country: None (occurrence: None)
  Receive Date: 20120314
  Receipt Date: 20120307
  Transmission Date: 20120608
  Serious: Yes (Hospitalization, Other)
  Sender: FDA-Public Use
  Company Number: PHEH2012US001735

PATIENT
  Sex: Female

DRUGS (15)
  1. BACLOFEN [Concomitant]
  2. FUROSEMIDE [Concomitant]
  3. DONEPEZIL HCL [Concomitant]
     Dosage: UNK UKN, UNK
  4. BONIVA [Concomitant]
     Dosage: UNK UKN, UNK
  5. TRAMADOL HCL [Concomitant]
     Dosage: UNK UKN, UNK
  6. RANITIDINE [Concomitant]
  7. CELEXA [Concomitant]
     Dosage: UNK UKN, UNK
  8. ARICEPT [Concomitant]
     Dosage: UNK UKN, UNK
  9. SYNTHROID [Concomitant]
  10. CELEBREX [Concomitant]
  11. CITALOPRAM [Concomitant]
  12. GILENYA [Suspect]
     Indication: MULTIPLE SCLEROSIS
     Dosage: 0.5 MG, QD
     Route: 048
     Dates: start: 20120111
  13. OMEPRAZOLE [Concomitant]
  14. CALCIUM WITH VITAMIN D [Concomitant]
  15. NAMENDA [Concomitant]

REACTIONS (6)
  - HEADACHE [None]
  - CHEST PAIN [None]
  - ARTHRITIS [None]
  - PULMONARY EMBOLISM [None]
  - ARTHRALGIA [None]
  - NASOPHARYNGITIS [None]
